FAERS Safety Report 19226916 (Version 2)
Quarter: 2021Q2

REPORT INFORMATION
  Report Type: Spontaneous
  Country: AT (occurrence: AT)
  Receive Date: 20210506
  Receipt Date: 20210511
  Transmission Date: 20210717
  Serious: Yes (Other)
  Sender: FDA-Public Use
  Company Number: AT-BAYER-2021-134126

PATIENT
  Age: 45 Year
  Sex: Male

DRUGS (1)
  1. JIVI [Suspect]
     Active Substance: DAMOCTOCOG ALFA PEGOL
     Indication: FACTOR VIII DEFICIENCY
     Dosage: 2000 IU, QOD
     Dates: start: 20200729

REACTIONS (2)
  - Traumatic fracture [None]
  - Muscle haemorrhage [None]

NARRATIVE: CASE EVENT DATE: 20201026
